FAERS Safety Report 18004884 (Version 2)
Quarter: 2020Q3

REPORT INFORMATION
  Report Type: Spontaneous
  Country: US (occurrence: US)
  Receive Date: 20200709
  Receipt Date: 20200716
  Transmission Date: 20201103
  Serious: No
  Sender: FDA-Public Use
  Company Number: US-PFIZER INC-2020261580

PATIENT
  Age: 6 Year
  Sex: Female

DRUGS (1)
  1. EUCRISA [Suspect]
     Active Substance: CRISABOROLE
     Indication: DERMATITIS ATOPIC
     Dosage: UNK, 2X/DAY[EUCRISA 2 % APPLY TO AFFECTED AREAS TWICE A DAY]
     Route: 061

REACTIONS (2)
  - Rash [Unknown]
  - Eczema [Unknown]
